FAERS Safety Report 6772663-7 (Version None)
Quarter: 2010Q2

REPORT INFORMATION
  Report Type: 
  Country: None (occurrence: None)
  Receive Date: 20100616
  Receipt Date: 20100204
  Transmission Date: 20101027
  Serious: No
  Sender: FDA-Public Use
  Company Number: US-ASTRAZENECA-2010SE05132

PATIENT
  Age: 77 Year
  Sex: Male
  Weight: 76.2 kg

DRUGS (8)
  1. PULMICORT FLEXHALER [Suspect]
     Indication: ASTHMA
     Dosage: 2 PUFFS BID
     Route: 055
     Dates: start: 20020101, end: 20100101
  2. PULMICORT FLEXHALER [Suspect]
     Dosage: 4 PUFFS BID
     Route: 055
     Dates: start: 20100101
  3. LUPRON [Concomitant]
     Indication: PROSTATE CANCER
     Route: 042
  4. DILTIAZEM [Concomitant]
  5. PRAVASTATIN [Concomitant]
  6. LISINOPRIL [Concomitant]
  7. ALPHAGAN [Concomitant]
     Dosage: 1 DROP EACH EYE, BID
  8. ASPIRIN [Concomitant]

REACTIONS (3)
  - ANAEMIA [None]
  - BRONCHITIS [None]
  - LOWER RESPIRATORY TRACT INFECTION [None]
